FAERS Safety Report 17791716 (Version 1)
Quarter: 2020Q2

REPORT INFORMATION
  Report Type: Spontaneous
  Country: GB (occurrence: GB)
  Receive Date: 20200515
  Receipt Date: 20200515
  Transmission Date: 20200714
  Serious: Yes (Hospitalization, Disabling)
  Sender: FDA-Public Use
  Company Number: GB-ACCORD-181581

PATIENT
  Age: 68 Year
  Sex: Male

DRUGS (1)
  1. ATORVASTATIN/ATORVASTATIN CALCIUM [Suspect]
     Active Substance: ATORVASTATIN CALCIUM
     Indication: PRODUCT USED FOR UNKNOWN INDICATION
     Dosage: SRENGTH: 20 MG
     Route: 048
     Dates: start: 20160209, end: 20200406

REACTIONS (5)
  - Paralysis [Recovered/Resolved with Sequelae]
  - Muscle spasms [Unknown]
  - Musculoskeletal stiffness [Recovered/Resolved with Sequelae]
  - Aphonia [Recovered/Resolved with Sequelae]
  - Myalgia [Recovered/Resolved with Sequelae]

NARRATIVE: CASE EVENT DATE: 20160310
